FAERS Safety Report 10072824 (Version 3)
Quarter: 2014Q2

REPORT INFORMATION
  Report Type: Report from Study
  Country: JP (occurrence: JP)
  Receive Date: 20140411
  Receipt Date: 20140424
  Transmission Date: 20141212
  Serious: Yes (Hospitalization, Other)
  Sender: FDA-Public Use
  Company Number: JP-BAYER-2014-051156

PATIENT
  Age: 80 Year
  Sex: Male
  Weight: 65 kg

DRUGS (21)
  1. RIOCIGUAT (GUANYLATE CYCLASE STIMULATOR) [Suspect]
     Indication: PULMONARY HYPERTENSION
     Dosage: UNK
     Dates: start: 20101201, end: 20101213
  2. RIOCIGUAT (GUANYLATE CYCLASE STIMULATOR) [Suspect]
     Indication: PULMONARY HYPERTENSION
     Dosage: UNK
     Dates: start: 20101214, end: 20101227
  3. RIOCIGUAT (GUANYLATE CYCLASE STIMULATOR) [Suspect]
     Indication: PULMONARY HYPERTENSION
     Dosage: UNK
     Dates: start: 20101228, end: 20110110
  4. RIOCIGUAT (GUANYLATE CYCLASE STIMULATOR) [Suspect]
     Indication: PULMONARY HYPERTENSION
     Dosage: UNK
     Dates: start: 20110114, end: 20110124
  5. RIOCIGUAT (GUANYLATE CYCLASE STIMULATOR) [Suspect]
     Indication: PULMONARY HYPERTENSION
     Dosage: 1.5
     Dates: start: 20110125, end: 20110221
  6. RIOCIGUAT (GUANYLATE CYCLASE STIMULATOR) [Suspect]
     Indication: PULMONARY HYPERTENSION
     Dosage: 1.5
     Dates: start: 20110222, end: 20110516
  7. RIOCIGUAT (GUANYLATE CYCLASE STIMULATOR) [Suspect]
     Indication: PULMONARY HYPERTENSION
     Dosage: 1.5
     Dates: start: 20110517, end: 20110815
  8. RIOCIGUAT (GUANYLATE CYCLASE STIMULATOR) [Suspect]
     Indication: PULMONARY HYPERTENSION
     Dosage: 1.5
     Dates: start: 20110816, end: 20111114
  9. RIOCIGUAT (GUANYLATE CYCLASE STIMULATOR) [Suspect]
     Indication: PULMONARY HYPERTENSION
     Dosage: 1.5
     Dates: start: 20111115, end: 20120206
  10. RIOCIGUAT (GUANYLATE CYCLASE STIMULATOR) [Suspect]
     Indication: PULMONARY HYPERTENSION
     Dosage: 1.5
     Dates: start: 20120207, end: 20120229
  11. RIOCIGUAT (GUANYLATE CYCLASE STIMULATOR) [Suspect]
     Indication: PULMONARY HYPERTENSION
     Dosage: 1.5
     Dates: start: 20120302, end: 20120304
  12. RIOCIGUAT (GUANYLATE CYCLASE STIMULATOR) [Suspect]
     Indication: PULMONARY HYPERTENSION
     Dosage: 1.5
     Dates: start: 20120306, end: 20120315
  13. RIOCIGUAT (GUANYLATE CYCLASE STIMULATOR) [Suspect]
     Indication: PULMONARY HYPERTENSION
     Dosage: 1.5
     Dates: start: 20120317, end: 20120514
  14. RIOCIGUAT (GUANYLATE CYCLASE STIMULATOR) [Suspect]
     Indication: PULMONARY HYPERTENSION
     Dosage: 1.5
     Dates: start: 20120515, end: 20120820
  15. RIOCIGUAT (GUANYLATE CYCLASE STIMULATOR) [Suspect]
     Indication: PULMONARY HYPERTENSION
     Dosage: 1.5
     Dates: start: 20120821, end: 20121112
  16. RIOCIGUAT (GUANYLATE CYCLASE STIMULATOR) [Suspect]
     Indication: PULMONARY HYPERTENSION
     Dosage: 1.5
     Dates: start: 20121113, end: 20130204
  17. RIOCIGUAT (GUANYLATE CYCLASE STIMULATOR) [Suspect]
     Indication: PULMONARY HYPERTENSION
     Dosage: 1.5
     Dates: start: 20130205, end: 20130522
  18. RIOCIGUAT (GUANYLATE CYCLASE STIMULATOR) [Suspect]
     Indication: PULMONARY HYPERTENSION
     Dosage: 1.5
     Dates: start: 20130523, end: 20130807
  19. RIOCIGUAT (GUANYLATE CYCLASE STIMULATOR) [Suspect]
     Indication: PULMONARY HYPERTENSION
     Dosage: 1.5
     Dates: start: 20130808, end: 20131030
  20. RIOCIGUAT (GUANYLATE CYCLASE STIMULATOR) [Suspect]
     Indication: PULMONARY HYPERTENSION
     Dosage: 1.5
     Dates: start: 20131031, end: 20140212
  21. RIOCIGUAT (GUANYLATE CYCLASE STIMULATOR) [Suspect]
     Indication: PULMONARY HYPERTENSION
     Dosage: 1.5
     Dates: start: 20140213

REACTIONS (1)
  - Atrial flutter [Recovered/Resolved]
